FAERS Safety Report 9119053 (Version 1)
Quarter: 2013Q1

REPORT INFORMATION
  Report Type: Spontaneous
  Country: US (occurrence: US)
  Receive Date: 20130226
  Receipt Date: 20130226
  Transmission Date: 20140127
  Serious: No
  Sender: FDA-Public Use
  Company Number: US-PFIZER INC-2013065177

PATIENT
  Age: 28 Year
  Sex: Male

DRUGS (8)
  1. SEPTRA DS [Suspect]
     Dosage: UNK
  2. ERYTHROMYCIN [Suspect]
     Dosage: UNK
  3. CECLOR [Suspect]
     Dosage: UNK
  4. KEFLEX [Suspect]
     Dosage: UNK
  5. LEVAQUIN [Suspect]
     Dosage: UNK
  6. ALLEGRA-D [Suspect]
     Dosage: UNK
  7. TORADOL [Suspect]
     Dosage: UNK
  8. METHADONE [Suspect]
     Indication: PAIN
     Dosage: UNK

REACTIONS (1)
  - Drug hypersensitivity [Unknown]
